FAERS Safety Report 19593474 (Version 1)
Quarter: 2021Q3

REPORT INFORMATION
  Report Type: Spontaneous
  Country: DE (occurrence: DE)
  Receive Date: 20210722
  Receipt Date: 20210722
  Transmission Date: 20211014
  Serious: Yes (Other)
  Sender: FDA-Public Use
  Company Number: DE-DRREDDYS-SPO/GER/21/0137839

PATIENT
  Age: 18 Year
  Sex: Female

DRUGS (9)
  1. VALPROIC ACID. [Concomitant]
     Active Substance: VALPROIC ACID
     Indication: PRODUCT USED FOR UNKNOWN INDICATION
     Dosage: SEIT LANGEREM
     Dates: end: 20200824
  2. BUPROPION. [Suspect]
     Active Substance: BUPROPION
     Indication: PRODUCT USED FOR UNKNOWN INDICATION
     Dates: start: 20200915
  3. BUPROPION. [Interacting]
     Active Substance: BUPROPION
     Dates: start: 20200908, end: 20200914
  4. VENLAFAXINE [Interacting]
     Active Substance: VENLAFAXINE HYDROCHLORIDE
     Indication: PRODUCT USED FOR UNKNOWN INDICATION
     Dates: start: 20200908, end: 20200917
  5. VENLAFAXINE [Interacting]
     Active Substance: VENLAFAXINE HYDROCHLORIDE
     Dosage: BEI DIESER DOSIS AUFTRETEN DER UAW
     Dates: start: 20200918, end: 20200921
  6. VENLAFAXINE [Interacting]
     Active Substance: VENLAFAXINE HYDROCHLORIDE
     Dates: start: 20200901, end: 20200907
  7. VENLAFAXINE [Interacting]
     Active Substance: VENLAFAXINE HYDROCHLORIDE
     Dates: start: 20200928
  8. VENLAFAXINE [Interacting]
     Active Substance: VENLAFAXINE HYDROCHLORIDE
     Dates: start: 20200923, end: 20200927
  9. VENLAFAXINE [Interacting]
     Active Substance: VENLAFAXINE HYDROCHLORIDE
     Dosage: SEIT 1.5 JAHREN
     Dates: end: 20200831

REACTIONS (9)
  - Crying [Recovered/Resolved]
  - Malaise [Recovered/Resolved]
  - Head discomfort [Recovered/Resolved]
  - Chest discomfort [Recovered/Resolved]
  - Drug withdrawal syndrome [Recovered/Resolved]
  - Sleep disorder [Recovered/Resolved]
  - Nausea [Recovered/Resolved]
  - Feeling abnormal [Recovered/Resolved]
  - Eating disorder [Recovered/Resolved]

NARRATIVE: CASE EVENT DATE: 20200922
